FAERS Safety Report 6760968-5 (Version None)
Quarter: 2010Q2

REPORT INFORMATION
  Report Type: 
  Country: None (occurrence: None)
  Receive Date: 20100608
  Receipt Date: 20100528
  Transmission Date: 20101027
  Serious: Yes (Hospitalization)
  Sender: FDA-Public Use
  Company Number: US-BAXTER-2010BH012511

PATIENT
  Sex: Male

DRUGS (1)
  1. DIANEAL [Suspect]
     Indication: PERITONEAL DIALYSIS
     Route: 033

REACTIONS (6)
  - DEHYDRATION [None]
  - DIARRHOEA [None]
  - FEEDING DISORDER [None]
  - GASTRITIS [None]
  - GASTROINTESTINAL VIRAL INFECTION [None]
  - PERITONITIS [None]
